FAERS Safety Report 9498453 (Version 3)
Quarter: 2013Q3

REPORT INFORMATION
  Report Type: Spontaneous
  Country: JP (occurrence: JP)
  Receive Date: 20130904
  Receipt Date: 20130920
  Transmission Date: 20140515
  Serious: Yes (Death, Other)
  Sender: FDA-Public Use
  Company Number: JP-OTSUKA-JP-2013-13320

PATIENT
  Age: 95 Year
  Sex: Female
  Weight: 28.6 kg

DRUGS (3)
  1. PLETAAL [Suspect]
     Indication: CEREBRAL INFARCTION
     Dosage: 200 MG MILLIGRAM(S), DAILY DOSE
     Route: 048
     Dates: end: 20121022
  2. DONEPEZIL HYDROCHLORIDE [Concomitant]
     Dosage: 5 MG MILLIGRAM(S), DAILY DOSE
     Route: 048
  3. MEMANTINE HYDROCHLORIDE [Concomitant]
     Dosage: 20 MG MILLIGRAM(S), DAILY DOSE
     Route: 048

REACTIONS (3)
  - Stress cardiomyopathy [Unknown]
  - Large intestinal haemorrhage [Unknown]
  - Respiratory failure [Fatal]
